FAERS Safety Report 9612654 (Version 1)
Quarter: 2013Q4

REPORT INFORMATION
  Report Type: Spontaneous
  Country: US (occurrence: None)
  Receive Date: 20131008
  Receipt Date: 20131008
  Transmission Date: 20140711
  Serious: Yes (Other)
  Sender: FDA-Public Use
  Company Number: 2013P1019892

PATIENT
  Age: 71 Year
  Sex: Female

DRUGS (3)
  1. DIGOXIN [Suspect]
  2. METOPROLOL [Concomitant]
  3. CIPROFLOXACIN [Concomitant]

REACTIONS (11)
  - Mental status changes [None]
  - Nausea [None]
  - Vomiting [None]
  - Visual impairment [None]
  - Diarrhoea [None]
  - Cardioactive drug level increased [None]
  - Arrhythmia supraventricular [None]
  - Electrocardiogram PR prolongation [None]
  - Electrocardiogram ST-T change [None]
  - Electrocardiogram QRS complex shortened [None]
  - Clostridium test positive [None]
